FAERS Safety Report 11766547 (Version 3)
Quarter: 2015Q4

REPORT INFORMATION
  Report Type: Report from Study
  Country: US (occurrence: US)
  Receive Date: 20151123
  Receipt Date: 20151223
  Transmission Date: 20160304
  Serious: No
  Sender: FDA-Public Use
  Company Number: US-AMGEN-USASL2015122169

PATIENT
  Age: 78 Year
  Sex: Female

DRUGS (1)
  1. ENBREL [Suspect]
     Active Substance: ETANERCEPT
     Indication: SJOGREN^S SYNDROME
     Dosage: UNK
     Route: 065

REACTIONS (5)
  - Device issue [Unknown]
  - Frustration [Unknown]
  - Off label use [Unknown]
  - Memory impairment [Unknown]
  - Device malfunction [Unknown]

NARRATIVE: CASE EVENT DATE: 201511
